FAERS Safety Report 15365054 (Version 2)
Quarter: 2018Q4

REPORT INFORMATION
  Report Type: Spontaneous
  Country: BR (occurrence: BR)
  Receive Date: 20180910
  Receipt Date: 20181009
  Transmission Date: 20190204
  Serious: No
  Sender: FDA-Public Use
  Company Number: BR-ASTELLAS-2018US039241

PATIENT
  Sex: Male

DRUGS (2)
  1. MIRABEGRON [Suspect]
     Active Substance: MIRABEGRON
     Route: 048
  2. MIRABEGRON [Suspect]
     Active Substance: MIRABEGRON
     Indication: POLLAKIURIA
     Route: 048

REACTIONS (3)
  - Urinary incontinence [Recovered/Resolved]
  - Drug intolerance [Unknown]
  - Dysuria [Recovered/Resolved]
